FAERS Safety Report 18500472 (Version 1)
Quarter: 2020Q4

REPORT INFORMATION
  Report Type: Spontaneous
  Country: US (occurrence: US)
  Receive Date: 20201112
  Receipt Date: 20201112
  Transmission Date: 20210114
  Serious: No
  Sender: FDA-Public Use
  Company Number: None

PATIENT
  Age: 83 Year
  Sex: Male
  Weight: 69.75 kg

DRUGS (18)
  1. PROBIOTIC DAILY [Concomitant]
  2. POLYETHYLENE GLYCOL 1000 [Concomitant]
     Active Substance: POLYETHYLENE GLYCOL 1000
  3. ATORVASTATIN CALCIUM. [Concomitant]
     Active Substance: ATORVASTATIN CALCIUM
  4. SUTENT [Suspect]
     Active Substance: SUNITINIB MALATE
     Indication: MALIGNANT NEOPLASM OF THYMUS
     Route: 048
     Dates: start: 20200915, end: 20201112
  5. VITAMIN D3 COMPLETE [Concomitant]
  6. ASCORBIC ACID. [Concomitant]
     Active Substance: ASCORBIC ACID
  7. ALPRAZOLAM. [Concomitant]
     Active Substance: ALPRAZOLAM
  8. MELATONIN [Concomitant]
     Active Substance: MELATONIN
  9. GLUCOSAMINE CHOND COMPLEX/MSM [Concomitant]
  10. PREDNISONE. [Concomitant]
     Active Substance: PREDNISONE
  11. LEVOTHYROXINE SODIUM. [Concomitant]
     Active Substance: LEVOTHYROXINE SODIUM
  12. ZINC. [Concomitant]
     Active Substance: ZINC
  13. LIDOCAINE. [Concomitant]
     Active Substance: LIDOCAINE
  14. FUROSEMIDE. [Concomitant]
     Active Substance: FUROSEMIDE
  15. METOPROLOL TARTRATE. [Concomitant]
     Active Substance: METOPROLOL TARTRATE
  16. LOSARTAN POTASSIUM. [Concomitant]
     Active Substance: LOSARTAN POTASSIUM
  17. FERROUS SULFATE. [Concomitant]
     Active Substance: FERROUS SULFATE
  18. VITAMIN B12 [Concomitant]
     Active Substance: CYANOCOBALAMIN

REACTIONS (4)
  - Pancytopenia [None]
  - Liver function test increased [None]
  - Pyrexia [None]
  - Fluid retention [None]

NARRATIVE: CASE EVENT DATE: 20201112
